FAERS Safety Report 10726380 (Version 1)
Quarter: 2015Q1

REPORT INFORMATION
  Report Type: Spontaneous
  Country: US (occurrence: US)
  Receive Date: 20150121
  Receipt Date: 20150121
  Transmission Date: 20150721
  Serious: No
  Sender: FDA-Public Use
  Company Number: US-PFIZER INC-2015021471

PATIENT
  Age: 57 Year
  Sex: Female

DRUGS (1)
  1. XALKORI [Suspect]
     Active Substance: CRIZOTINIB
     Dosage: 200 MG, 2X/DAY

REACTIONS (3)
  - Hypersomnia [Unknown]
  - Activities of daily living impaired [Unknown]
  - Fatigue [Unknown]
